FAERS Safety Report 10206246 (Version 1)
Quarter: 2014Q2

REPORT INFORMATION
  Report Type: Spontaneous
  Country: US (occurrence: None)
  Receive Date: 20140527
  Receipt Date: 20140527
  Transmission Date: 20141212
  Serious: Yes (Disabling)
  Sender: FDA-Public Use
  Company Number: None

PATIENT
  Age: 66 Year
  Sex: Female
  Weight: 78.93 kg

DRUGS (1)
  1. COLAZAL [Suspect]
     Indication: COLITIS ULCERATIVE
     Dosage: 3 PILLS, THREE TIMES DAILY, TAKEN BY MOUTH
     Route: 048
     Dates: start: 20140416, end: 20140524

REACTIONS (5)
  - Fibromyalgia [None]
  - Headache [None]
  - Fatigue [None]
  - Feeling abnormal [None]
  - Blood glucose increased [None]
